FAERS Safety Report 5704306-5 (Version None)
Quarter: 2008Q2

REPORT INFORMATION
  Report Type: 
  Country: None (occurrence: None)
  Receive Date: 20080414
  Receipt Date: 20070606
  Transmission Date: 20081010
  Serious: Yes (Other)
  Sender: FDA-Public Use
  Company Number: DE-JNJFOC-20070101816

PATIENT
  Sex: Female
  Weight: 64 kg

DRUGS (3)
  1. VERMOX [Suspect]
     Indication: HELMINTHIC INFECTION
     Route: 048
     Dates: start: 20070107, end: 20070109
  2. HOMEOPATHIC DRUG [Concomitant]
     Indication: PROPHYLAXIS
     Route: 048
  3. VITAMIN B COMPLEX FORTE [Concomitant]
     Indication: PROPHYLAXIS
     Route: 048

REACTIONS (2)
  - DRUG EXPOSURE DURING PREGNANCY [None]
  - PREMATURE SEPARATION OF PLACENTA [None]
